FAERS Safety Report 11279355 (Version 4)
Quarter: 2015Q3

REPORT INFORMATION
  Report Type: Spontaneous
  Country: GB (occurrence: GB)
  Receive Date: 20150717
  Receipt Date: 20150805
  Transmission Date: 20151125
  Serious: Yes (Hospitalization, Other)
  Sender: FDA-Public Use
  Company Number: GB-SA-2015SA102563

PATIENT
  Age: 57 Year
  Sex: Male

DRUGS (3)
  1. LANTUS [Suspect]
     Active Substance: INSULIN GLARGINE
     Route: 058
     Dates: start: 2005
  2. CLIKSTAR [Suspect]
     Active Substance: CLIKSTAR
     Dates: start: 2005
  3. NOVORAPID [Concomitant]
     Active Substance: INSULIN ASPART

REACTIONS (10)
  - Condition aggravated [Not Recovered/Not Resolved]
  - Heart rate decreased [Recovered/Resolved]
  - Dizziness [Unknown]
  - Blood glucose increased [Not Recovered/Not Resolved]
  - Sudden hearing loss [Unknown]
  - Blood pressure decreased [Recovered/Resolved]
  - Glycosylated haemoglobin increased [Not Recovered/Not Resolved]
  - Cerebrovascular accident [Unknown]
  - Seizure [Unknown]
  - Drug administration error [Unknown]

NARRATIVE: CASE EVENT DATE: 2005
